FAERS Safety Report 4848368-6 (Version None)
Quarter: 2005Q4

REPORT INFORMATION
  Report Type: 
  Country: None (occurrence: None)
  Receive Date: 20051208
  Receipt Date: 20051129
  Transmission Date: 20060501
  Serious: Yes (Other)
  Sender: FDA-Public Use
  Company Number: CA-ROCHE-426872

PATIENT
  Age: 64 Year
  Sex: Male

DRUGS (33)
  1. ROCEPHIN [Suspect]
     Indication: DRUG USE FOR UNKNOWN INDICATION
     Route: 042
  2. VANCOMYCIN [Concomitant]
  3. POTASSIUM CHLORIDE [Concomitant]
  4. MORPHINE [Concomitant]
  5. ACETAMINOPHEN [Concomitant]
  6. HEPARIN [Concomitant]
  7. DOCUSATE SODIUM [Concomitant]
  8. METRONIDAZOLE [Concomitant]
  9. CORDARONE [Concomitant]
  10. COMBIVENT [Concomitant]
  11. METOCLOPRAMIDE [Concomitant]
  12. DIPHENHYDRAMINE HCL [Concomitant]
  13. PANTOPRAZOLE SODIUM [Concomitant]
     Route: 048
  14. METOPROLOL [Concomitant]
  15. HALOPERIDOL [Concomitant]
  16. VITAMIN K1 [Concomitant]
  17. PPN [Concomitant]
     Dosage: TPN (TOTAL PARENTERAL NUTRITION).
  18. HUMULIN R [Concomitant]
  19. TAZOCIN [Concomitant]
  20. DIMENHYDRINATE [Concomitant]
  21. BREVIBLOC [Concomitant]
  22. NAPROSYN [Concomitant]
  23. CALCIUM CHLORIDE [Concomitant]
  24. DIGOXIN [Concomitant]
  25. ANUSOL [Concomitant]
  26. SODIUM POLYSTYRENE SULFONATE [Concomitant]
     Dosage: REPORTED AS SODIUM POLYSTYRENE.
  27. CLONIDINE [Concomitant]
  28. NOREPINEPHRINE [Concomitant]
  29. MIDAZOLAM [Concomitant]
  30. SODIUM PHOSPHATES [Concomitant]
  31. CALCIUM GLUCONATE [Concomitant]
  32. BISACODYL [Concomitant]
  33. LABETALOL [Concomitant]
     Dosage: REPORTED AS LABETOLOL.

REACTIONS (7)
  - CHILLS [None]
  - FLUSHING [None]
  - LEUKOCYTOSIS [None]
  - LICHENOID KERATOSIS [None]
  - PYREXIA [None]
  - RASH ERYTHEMATOUS [None]
  - SKIN EXFOLIATION [None]
